FAERS Safety Report 9835916 (Version 2)
Quarter: 2014Q1

REPORT INFORMATION
  Report Type: Spontaneous
  Country: DE (occurrence: DE)
  Receive Date: 20140122
  Receipt Date: 20140204
  Transmission Date: 20141002
  Serious: Yes (Other)
  Sender: FDA-Public Use
  Company Number: ALCN2014DE000662

PATIENT
  Age: 66 Year
  Sex: Female

DRUGS (1)
  1. AZOPT [Suspect]
     Dosage: UNK
     Route: 047

REACTIONS (1)
  - Optic nerve injury [Not Recovered/Not Resolved]
